FAERS Safety Report 13512127 (Version 1)
Quarter: 2017Q2

REPORT INFORMATION
  Report Type: Spontaneous
  Country: US (occurrence: US)
  Receive Date: 20170504
  Receipt Date: 20170504
  Transmission Date: 20170830
  Serious: No
  Sender: FDA-Public Use
  Company Number: US-SHIRE-US201710010

PATIENT
  Age: 71 Year
  Sex: Male
  Weight: 86.17 kg

DRUGS (6)
  1. BILBERRY                           /01397601/ [Concomitant]
     Active Substance: BILBERRY
     Indication: SUPPLEMENTATION THERAPY
     Dosage: 60 MG, 1X/DAY:QD
     Route: 048
     Dates: start: 20131115
  2. RETAINE HPMC [Concomitant]
     Active Substance: HYPROMELLOSE 2910 (4000 MPA.S)
     Indication: DRY EYE
     Dosage: UNK UNK, OTHER AS NEEDED
     Route: 047
     Dates: start: 2016
  3. XIIDRA [Suspect]
     Active Substance: LIFITEGRAST
     Indication: DRY EYE
     Dosage: 1 GTT INTO BOTH EYES, 2X/DAY:BID
     Route: 047
     Dates: start: 201702
  4. AUTOLOGOUS HUMAN CORNEAL EPITHELIAL CELLS [Concomitant]
     Indication: DRY EYE
     Dosage: UNK, OTHER AS NEEDED
     Route: 047
     Dates: start: 20150727
  5. PYCNOGENOL [Concomitant]
     Active Substance: DIETARY SUPPLEMENT
     Indication: SUPPLEMENTATION THERAPY
     Dosage: 50 MG, 1X/DAY:QD
     Route: 048
     Dates: start: 20121231
  6. OCUVITE LUTEIN + ZEAXANTHIN [Concomitant]
     Indication: SUPPLEMENTATION THERAPY
     Dosage: 6 MG, 1X/DAY:QD
     Route: 048
     Dates: start: 20131115

REACTIONS (2)
  - Drug ineffective [Not Recovered/Not Resolved]
  - Product quality issue [Unknown]

NARRATIVE: CASE EVENT DATE: 201702
